FAERS Safety Report 17250632 (Version 25)
Quarter: 2025Q1

REPORT INFORMATION
  Report Type: Report from Study
  Country: DE (occurrence: DE)
  Receive Date: 20200109
  Receipt Date: 20250124
  Transmission Date: 20250409
  Serious: No
  Sender: ROCHE
  Company Number: DE-ROCHE-2491834

PATIENT
  Age: 44 Year
  Sex: Female

DRUGS (9)
  1. OCREVUS [Suspect]
     Active Substance: OCRELIZUMAB
     Indication: Relapsing-remitting multiple sclerosis
     Dosage: SUBSEQUENT DOSE 600 MG 1 IN 189 DAYS?SUBSEQUENT DOSE 600 MG 1 IN 175 DAYS
     Route: 042
     Dates: start: 20191115
  2. OCREVUS [Suspect]
     Active Substance: OCRELIZUMAB
     Route: 042
     Dates: start: 20191129
  3. OCREVUS [Suspect]
     Active Substance: OCRELIZUMAB
     Route: 042
     Dates: start: 20210604
  4. CORTISONE [Suspect]
     Active Substance: CORTISONE
     Indication: Premedication
     Route: 065
  5. COMIRNATY (TOZINAMERAN) [Suspect]
     Active Substance: TOZINAMERAN
     Indication: COVID-19 prophylaxis
     Route: 065
  6. AUBAGIO [Suspect]
     Active Substance: TERIFLUNOMIDE
     Indication: Herpes virus infection
     Route: 065
  7. LEVOTHYROXINE SODIUM [Concomitant]
     Active Substance: LEVOTHYROXINE SODIUM
  8. DIMENHYDRINATE [Concomitant]
     Active Substance: DIMENHYDRINATE
     Indication: Premedication
  9. CHOLECALCIFEROL [Concomitant]
     Active Substance: CHOLECALCIFEROL

REACTIONS (29)
  - Dizziness [Recovered/Resolved]
  - Visual impairment [Recovered/Resolved]
  - Fatigue [Recovered/Resolved]
  - Paraesthesia [Recovered/Resolved]
  - Oral herpes [Recovered/Resolved]
  - Epicondylitis [Recovered/Resolved]
  - Inappropriate schedule of product administration [Unknown]
  - Blood creatinine abnormal [Recovered/Resolved]
  - Glomerular filtration rate decreased [Recovered/Resolved]
  - Swelling face [Recovered/Resolved]
  - Swelling [Not Recovered/Not Resolved]
  - Sleep disorder [Recovered/Resolved]
  - Mood swings [Recovered/Resolved]
  - Intervertebral disc protrusion [Recovered/Resolved]
  - Nausea [Recovered/Resolved]
  - Middle insomnia [Recovered/Resolved]
  - Cardiovascular disorder [Recovered/Resolved]
  - Eye pruritus [Recovered/Resolved]
  - Rhinorrhoea [Recovered/Resolved]
  - Off label use [Unknown]
  - Oropharyngeal pain [Recovered/Resolved]
  - COVID-19 [Recovered/Resolved]
  - Micturition urgency [Recovered/Resolved]
  - Dysuria [Recovered/Resolved]
  - Cystitis [Recovered/Resolved]
  - Abdominal pain upper [Recovered/Resolved]
  - Decreased appetite [Recovered/Resolved]
  - Herpes virus infection [Recovered/Resolved]
  - Fatigue [Recovered/Resolved]

NARRATIVE: CASE EVENT DATE: 20191115
